FAERS Safety Report 12752051 (Version 4)
Quarter: 2022Q2

REPORT INFORMATION
  Report Type: Report from Study
  Country: US (occurrence: US)
  Receive Date: 20160915
  Receipt Date: 20220523
  Transmission Date: 20220720
  Serious: Yes (Other)
  Sender: FDA-Public Use
  Company Number: US-ASTELLAS-2016US026172

PATIENT
  Age: 72 Year
  Sex: Male

DRUGS (4)
  1. ENZALUTAMIDE [Suspect]
     Active Substance: ENZALUTAMIDE
     Indication: Prostate cancer
     Route: 048
     Dates: start: 20160608
  2. ENZALUTAMIDE [Suspect]
     Active Substance: ENZALUTAMIDE
     Route: 048
  3. ENZALUTAMIDE [Suspect]
     Active Substance: ENZALUTAMIDE
     Route: 048
  4. LUPRON [Concomitant]
     Active Substance: LEUPROLIDE ACETATE
     Indication: Product used for unknown indication
     Dosage: UNK UNK, UNKNOWN FREQ. (EVERY 03 MONTHS)
     Route: 065

REACTIONS (7)
  - Neuropathy peripheral [Unknown]
  - Liver function test increased [Unknown]
  - Back pain [Unknown]
  - Fatigue [Recovering/Resolving]
  - Blood pressure increased [Recovered/Resolved]
  - Muscle spasms [Unknown]
  - Illness [Unknown]

NARRATIVE: CASE EVENT DATE: 20160701
